FAERS Safety Report 19046100 (Version 1)
Quarter: 2021Q1

REPORT INFORMATION
  Report Type: Spontaneous
  Country: CA (occurrence: CA)
  Receive Date: 20210322
  Receipt Date: 20210322
  Transmission Date: 20210420
  Serious: Yes (Life-Threatening, Hospitalization)
  Sender: FDA-Public Use
  Company Number: CA-TEVA-2021-CA-1891380

PATIENT
  Age: 2 Month
  Sex: Female
  Weight: 5 kg

DRUGS (33)
  1. MORPHINE [Concomitant]
     Active Substance: MORPHINE
  2. ZINC. [Concomitant]
     Active Substance: ZINC
  3. DEXTROSE. [Concomitant]
     Active Substance: DEXTROSE
  4. FUROSEMIDE. [Concomitant]
     Active Substance: FUROSEMIDE
  5. IRON [Concomitant]
     Active Substance: IRON
  6. MACROGOL [Concomitant]
     Active Substance: POLYETHYLENE GLYCOLS
  7. ONDANSETRON [Concomitant]
     Active Substance: ONDANSETRON
  8. SODIUM [Concomitant]
     Active Substance: SODIUM
  9. METOCLOPRAMIDE. [Concomitant]
     Active Substance: METOCLOPRAMIDE
  10. POTASSIUM [Concomitant]
     Active Substance: POTASSIUM
  11. ACETAMINOPHEN. [Concomitant]
     Active Substance: ACETAMINOPHEN
  12. ALTEPLASE. [Concomitant]
     Active Substance: ALTEPLASE
  13. CEFOTAXIME [Concomitant]
     Active Substance: CEFOTAXIME SODIUM
  14. SUCROSE [Concomitant]
     Active Substance: SUCROSE
  15. ZINECARD [DEXRAZOXANE] [Concomitant]
  16. AMLODIPINE [Concomitant]
     Active Substance: AMLODIPINE BESYLATE
  17. CEFTRIAXONE SODIUM. [Concomitant]
     Active Substance: CEFTRIAXONE SODIUM
  18. CHOLECALCIFEROL [Concomitant]
     Active Substance: CHOLECALCIFEROL
  19. NIFEDIPINE. [Concomitant]
     Active Substance: NIFEDIPINE
  20. TOBRAMYCIN. [Concomitant]
     Active Substance: TOBRAMYCIN
  21. DEXAMETHASONE. [Concomitant]
     Active Substance: DEXAMETHASONE
  22. DIMENHYDRINATE. [Concomitant]
     Active Substance: DIMENHYDRINATE
  23. FILGRASTIM [Concomitant]
     Active Substance: FILGRASTIM
  24. HEPARIN CALCIUM [Concomitant]
     Active Substance: HEPARIN CALCIUM
  25. MAGNESIUM [Concomitant]
     Active Substance: MAGNESIUM
  26. NYSTATIN. [Concomitant]
     Active Substance: NYSTATIN
  27. SULFAMETHOXAZOLE/TRIMETHOPRIM [Concomitant]
     Active Substance: SULFAMETHOXAZOLE\TRIMETHOPRIM
  28. VANCOMYCIN [Concomitant]
     Active Substance: VANCOMYCIN
  29. VINCRISTINE SULFATE. [Suspect]
     Active Substance: VINCRISTINE SULFATE
     Indication: HEPATOBLASTOMA
     Route: 042
  30. DEXMEDETOMIDINE. [Concomitant]
     Active Substance: DEXMEDETOMIDINE
  31. CISPLATIN. [Suspect]
     Active Substance: CISPLATIN
     Indication: HEPATOBLASTOMA
     Route: 042
  32. DOXORUBICIN HYDROCHLORIDE. [Suspect]
     Active Substance: DOXORUBICIN HYDROCHLORIDE
     Indication: HEPATOBLASTOMA
     Route: 042
  33. LANSOPRAZOLE. [Concomitant]
     Active Substance: LANSOPRAZOLE

REACTIONS (5)
  - Respiratory failure [Recovered/Resolved]
  - Pyrexia [Recovered/Resolved]
  - Aplastic anaemia [Recovered/Resolved]
  - Neutropenia [Recovered/Resolved]
  - Pancytopenia [Recovered/Resolved]
